FAERS Safety Report 10608182 (Version 5)
Quarter: 2015Q2

REPORT INFORMATION
  Report Type: Report from Study
  Country: US (occurrence: US)
  Receive Date: 20141125
  Receipt Date: 20150423
  Transmission Date: 20150821
  Serious: Yes (Hospitalization, Other)
  Sender: FDA-Public Use
  Company Number: US-SA-2014SA131654

PATIENT
  Age: 49 Year
  Sex: Female

DRUGS (3)
  1. AUBAGIO [Suspect]
     Active Substance: TERIFLUNOMIDE
     Indication: MULTIPLE SCLEROSIS
     Route: 048
     Dates: start: 20150115
  2. AUBAGIO [Suspect]
     Active Substance: TERIFLUNOMIDE
     Indication: MULTIPLE SCLEROSIS
     Route: 048
     Dates: start: 20140919, end: 201411
  3. AUBAGIO [Suspect]
     Active Substance: TERIFLUNOMIDE
     Indication: MULTIPLE SCLEROSIS
     Route: 048

REACTIONS (16)
  - Unevaluable event [Recovering/Resolving]
  - Drug dose omission [Unknown]
  - Muscle twitching [Unknown]
  - Muscle spasticity [Unknown]
  - Condition aggravated [Unknown]
  - Pain [Unknown]
  - Asthma [Unknown]
  - Emotional disorder [Unknown]
  - Pruritus [Unknown]
  - Constipation [Unknown]
  - Muscle spasms [Unknown]
  - Walking aid user [Unknown]
  - Scratch [Unknown]
  - Frequent bowel movements [Unknown]
  - Thought blocking [Unknown]
  - Hypoaesthesia [Unknown]
